FAERS Safety Report 5084690-9 (Version None)
Quarter: 2006Q3

REPORT INFORMATION
  Report Type: 
  Country: None (occurrence: None)
  Receive Date: 20060821
  Receipt Date: 20060811
  Transmission Date: 20061208
  Serious: Yes (Other)
  Sender: FDA-Public Use
  Company Number: US-JNJFOC-20060803327

PATIENT
  Sex: Female
  Weight: 80.74 kg

DRUGS (7)
  1. TOPAMAX [Suspect]
     Indication: TRANSIENT ISCHAEMIC ATTACK
     Route: 048
  2. TOPAMAX [Suspect]
     Indication: CEREBROVASCULAR ACCIDENT
     Route: 048
  3. PLAVIX [Concomitant]
     Indication: ARTERIAL OCCLUSIVE DISEASE
     Route: 048
  4. ZOCOR [Concomitant]
     Route: 048
  5. LIPITOR [Concomitant]
     Indication: BLOOD CHOLESTEROL INCREASED
     Route: 048
  6. LOPRESSOR [Concomitant]
     Indication: HYPERTENSION
     Route: 048
  7. LASIX [Concomitant]
     Indication: HYPERTENSION
     Route: 048

REACTIONS (3)
  - BLINDNESS TRANSIENT [None]
  - CONFUSIONAL STATE [None]
  - EYE PAIN [None]
